FAERS Safety Report 4397342-5 (Version None)
Quarter: 2004Q2

REPORT INFORMATION
  Report Type: 
  Country: None (occurrence: None)
  Receive Date: 20040621
  Receipt Date: 20040223
  Transmission Date: 20050107
  Serious: Yes (Death)
  Sender: FDA-Public Use
  Company Number: USA-2004-0013318

PATIENT
  Age: 27 Year
  Sex: Female
  Weight: 91.2 kg

DRUGS (13)
  1. OXYCODONE HCL [Suspect]
  2. MEPIVACAINE HCL [Suspect]
  3. MORPHINE SULFATE [Suspect]
  4. METHADONE HCL [Suspect]
  5. ACETAMINOPHEN [Suspect]
  6. MARIJUANA (CANNABIS) [Suspect]
  7. COCAINE (COCAINE) [Suspect]
  8. NICOTINE [Suspect]
  9. CAFFEINE (CAFFEINE) [Suspect]
  10. ALPRAZOLAM [Suspect]
  11. BENZODIAZEPINE DERIVATIVES [Suspect]
  12. HYDROXYZINE [Concomitant]
  13. CHLORPROMAZINE [Concomitant]

REACTIONS (2)
  - ACCIDENTAL OVERDOSE [None]
  - MULTIPLE DRUG OVERDOSE [None]
